FAERS Safety Report 6505015-5 (Version None)
Quarter: 2009Q4

REPORT INFORMATION
  Report Type: 
  Country: None (occurrence: None)
  Receive Date: 20091218
  Receipt Date: 20091207
  Transmission Date: 20100525
  Serious: Yes (Other)
  Sender: FDA-Public Use
  Company Number: US-WYE-H12505409

PATIENT
  Sex: Male
  Weight: 99.88 kg

DRUGS (4)
  1. PRISTIQ [Suspect]
     Indication: DEPRESSION
     Route: 048
     Dates: start: 20091020
  2. METOPROLOL TARTRATE [Concomitant]
     Dosage: UNKNOWN
  3. LORATADINE [Concomitant]
     Dosage: UNKNOWN
  4. LEVOXYL [Concomitant]
     Dosage: UNKNOWN

REACTIONS (1)
  - SUICIDAL IDEATION [None]
